FAERS Safety Report 8229021-8 (Version None)
Quarter: 2012Q1

REPORT INFORMATION
  Report Type: 
  Country: None (occurrence: None)
  Receive Date: 20120322
  Receipt Date: 20120319
  Transmission Date: 20120608
  Serious: Yes (Other)
  Sender: FDA-Public Use
  Company Number: US-PFIZER INC-2012051680

PATIENT
  Sex: Female
  Weight: 69.841 kg

DRUGS (2)
  1. DESMOPRESSIN [Concomitant]
     Indication: SLEEP DISORDER
     Dosage: 0.2 MG, DAILY
  2. LIPITOR [Suspect]
     Indication: BLOOD CHOLESTEROL INCREASED
     Dosage: 20 MG, DAILY
     Route: 048

REACTIONS (3)
  - NEUROPATHY PERIPHERAL [None]
  - PAIN IN EXTREMITY [None]
  - MULTIPLE SCLEROSIS [None]
